FAERS Safety Report 18726912 (Version 1)
Quarter: 2021Q1

REPORT INFORMATION
  Report Type: Spontaneous
  Country: US (occurrence: US)
  Receive Date: 20210112
  Receipt Date: 20210112
  Transmission Date: 20210419
  Serious: Yes (Other)
  Sender: FDA-Public Use
  Company Number: US-CELLTRION INC.-2021US000078

PATIENT

DRUGS (1)
  1. INFLECTRA [Suspect]
     Active Substance: INFLIXIMAB-DYYB
     Indication: COLITIS ULCERATIVE
     Dosage: 5 MG/KG INTRAVENOUS INFUSION USUALLY EVERY WEEK
     Route: 042
     Dates: start: 2020

REACTIONS (7)
  - Tooth injury [Recovered/Resolved]
  - Plastic surgery [Recovered/Resolved with Sequelae]
  - Eyelid infection [Recovered/Resolved]
  - Colitis ulcerative [Recovered/Resolved]
  - Product dose omission issue [Recovered/Resolved with Sequelae]
  - Illness [Recovered/Resolved]
  - Off label use [Unknown]

NARRATIVE: CASE EVENT DATE: 2020
